FAERS Safety Report 8176073-X (Version None)
Quarter: 2012Q1

REPORT INFORMATION
  Report Type: 
  Country: None (occurrence: None)
  Receive Date: 20120228
  Receipt Date: 20120214
  Transmission Date: 20120608
  Serious: Yes (Hospitalization)
  Sender: FDA-Public Use
  Company Number: PNIS20120007

PATIENT
  Age: 47 Year
  Sex: Female

DRUGS (4)
  1. RITUXAN [Suspect]
     Indication: MULTIPLE MYELOMA
  2. PREDNISOLONE [Suspect]
     Indication: MULTIPLE MYELOMA
  3. FLUDARABINE PHOSPHATE [Suspect]
     Indication: MULTIPLE MYELOMA
  4. THYMOGLOBULIN [Suspect]
     Indication: MULTIPLE MYELOMA

REACTIONS (1)
  - HEPATITIS B [None]
